FAERS Safety Report 16902597 (Version 1)
Quarter: 2019Q4

REPORT INFORMATION
  Report Type: Spontaneous
  Country: US (occurrence: US)
  Receive Date: 20190816
  Receipt Date: 20190816
  Transmission Date: 20200122
  Serious: No
  Sender: FDA-Public Use
  Company Number: None

PATIENT
  Age: 36 Year
  Sex: Female

DRUGS (1)
  1. COPAXONE [Suspect]
     Active Substance: GLATIRAMER ACETATE
     Dates: start: 2011

REACTIONS (6)
  - Pain in extremity [None]
  - Insurance issue [None]
  - Therapy cessation [None]
  - Chills [None]
  - Flushing [None]
  - Muscle spasms [None]

NARRATIVE: CASE EVENT DATE: 20190816
